FAERS Safety Report 12109600 (Version 1)
Quarter: 2016Q1

REPORT INFORMATION
  Report Type: Spontaneous
  Country: US (occurrence: None)
  Receive Date: 20160223
  Receipt Date: 20160223
  Transmission Date: 20160526
  Serious: Yes (Other)
  Sender: FDA-Public Use
  Company Number: None

PATIENT
  Age: 56 Year
  Sex: Male
  Weight: 54.5 kg

DRUGS (1)
  1. HUMIRA [Suspect]
     Active Substance: ADALIMUMAB
     Dosage: 40MG/0.8ML EVERY OTHER WEEK SUBCUTANEOUSLY
     Route: 058
     Dates: start: 20150721

REACTIONS (3)
  - Injection site pruritus [None]
  - Wrong technique in product usage process [None]
  - Drug dose omission [None]

NARRATIVE: CASE EVENT DATE: 20160114
